FAERS Safety Report 8957192 (Version 2)
Quarter: 2015Q1

REPORT INFORMATION
  Report Type: Report from Study
  Country: US (occurrence: US)
  Receive Date: 20121210
  Receipt Date: 20150122
  Transmission Date: 20150721
  Serious: Yes (Death)
  Sender: FDA-Public Use
  Company Number: US-ROCHE-1165065

PATIENT
  Sex: Male

DRUGS (10)
  1. RITUXAN [Suspect]
     Active Substance: RITUXIMAB
     Dosage: CYCLE 1 DAY 21
     Route: 042
     Dates: start: 20110420
  2. METHOTREXATE [Concomitant]
     Active Substance: METHOTREXATE
  3. TYLENOL [Concomitant]
     Active Substance: ACETAMINOPHEN
     Route: 001
  4. RITUXAN [Suspect]
     Active Substance: RITUXIMAB
     Dosage: CYCLE 1 DAY 8
     Route: 042
     Dates: start: 20110406
  5. RITUXAN [Suspect]
     Active Substance: RITUXIMAB
     Dosage: CYCLE 1 DAY 15
     Route: 042
     Dates: start: 20110413
  6. IMURAN [Concomitant]
     Active Substance: AZATHIOPRINE
  7. HYDROCORTISONE. [Concomitant]
     Active Substance: HYDROCORTISONE
     Dosage: IVBP
     Route: 040
  8. RITUXAN [Suspect]
     Active Substance: RITUXIMAB
     Indication: DERMATOMYOSITIS
     Dosage: IVBP
     Route: 040
  9. RITUXAN [Suspect]
     Active Substance: RITUXIMAB
     Route: 042
     Dates: start: 20110330
  10. BENADRYL [Concomitant]
     Active Substance: DIPHENHYDRAMINE HYDROCHLORIDE
     Route: 042

REACTIONS (3)
  - Fatigue [Unknown]
  - Off label use [Unknown]
  - Death [Fatal]
